FAERS Safety Report 12520255 (Version 2)
Quarter: 2016Q3

REPORT INFORMATION
  Report Type: Spontaneous
  Country: ZA (occurrence: ZA)
  Receive Date: 20160630
  Receipt Date: 20160715
  Transmission Date: 20161109
  Serious: Yes (Hospitalization, Other)
  Sender: FDA-Public Use
  Company Number: ZA-GLAXOSMITHKLINE-ZA2016GSK092368

PATIENT
  Age: 4 Year
  Sex: Male

DRUGS (4)
  1. EPILIM [Concomitant]
     Active Substance: VALPROATE SODIUM
     Indication: EPILEPSY
  2. KEPPRA [Concomitant]
     Active Substance: LEVETIRACETAM
     Indication: EPILEPSY
  3. KEPPRA [Concomitant]
     Active Substance: LEVETIRACETAM
     Indication: EPILEPSY
  4. LAMICTIN [Suspect]
     Active Substance: LAMOTRIGINE
     Indication: EPILEPSY
     Dosage: UNK
     Route: 048

REACTIONS (8)
  - Vomiting [Unknown]
  - Product quality issue [Unknown]
  - Dysstasia [Unknown]
  - Somnolence [Unknown]
  - Overdose [Unknown]
  - Seizure [Unknown]
  - Abasia [Unknown]
  - Ataxia [Unknown]

NARRATIVE: CASE EVENT DATE: 20160624
